FAERS Safety Report 12207237 (Version 2)
Quarter: 2016Q3

REPORT INFORMATION
  Report Type: Spontaneous
  Country: JP (occurrence: JP)
  Receive Date: 20160324
  Receipt Date: 20160727
  Transmission Date: 20161109
  Serious: Yes (Other)
  Sender: FDA-Public Use
  Company Number: JP-TEVA-644565ISR

PATIENT
  Age: 60 Year
  Sex: Male
  Weight: 70 kg

DRUGS (18)
  1. OXINORM [Concomitant]
     Active Substance: OXYCODONE HYDROCHLORIDE
     Indication: BREAKTHROUGH PAIN
     Route: 048
     Dates: end: 20151102
  2. AVASTIN [Concomitant]
     Active Substance: BEVACIZUMAB
     Indication: CHEMOTHERAPY
     Route: 065
     Dates: end: 20151007
  3. TS-1 [Concomitant]
     Active Substance: GIMERACIL\OTERACIL\TEGAFUR
     Indication: CHEMOTHERAPY
     Route: 065
     Dates: start: 20151029, end: 20151030
  4. LYRICA [Concomitant]
     Active Substance: PREGABALIN
     Indication: CANCER PAIN
     Dosage: 300 MILLIGRAM DAILY;
     Route: 048
     Dates: end: 20151102
  5. NEXIUM [Concomitant]
     Active Substance: ESOMEPRAZOLE MAGNESIUM
     Indication: GASTRIC ULCER
     Dosage: 20 MILLIGRAM DAILY;
     Route: 048
     Dates: end: 20151102
  6. LOXOPROFEN [Concomitant]
     Active Substance: LOXOPROFEN
     Indication: CANCER PAIN
     Dosage: 180 MILLIGRAM DAILY;
     Route: 048
     Dates: end: 20151102
  7. TRAVELMIN [Concomitant]
     Active Substance: DIMENHYDRINATE
     Indication: NAUSEA
     Dosage: 3 DOSAGE FORMS DAILY;
     Route: 048
     Dates: end: 20151102
  8. ALIMTA [Concomitant]
     Active Substance: PEMETREXED DISODIUM
     Indication: CHEMOTHERAPY
     Route: 065
     Dates: end: 20151007
  9. E-FEN BUCCAL [Suspect]
     Active Substance: FENTANYL CITRATE
     Indication: BREAKTHROUGH PAIN
     Dosage: DAILY DOSE: 0 MICROGRAM - 200 MICROGRAM
     Route: 002
     Dates: start: 20151007, end: 20151020
  10. OXYCONTIN [Concomitant]
     Active Substance: OXYCODONE HYDROCHLORIDE
     Indication: CANCER PAIN
     Dosage: 50 MILLIGRAM DAILY;
     Route: 048
     Dates: end: 20151102
  11. CALONAL [Concomitant]
     Active Substance: ACETAMINOPHEN
     Indication: CANCER PAIN
     Dosage: 2400 MILLIGRAM DAILY;
     Route: 048
     Dates: end: 20151102
  12. DENOTAS [Concomitant]
     Active Substance: CALCIUM CARBONATE\CHOLECALCIFEROL\MAGNESIUM CARBONATE
     Indication: HYPOCALCAEMIA
     Dosage: 2 DOSAGE FORMS DAILY;
     Route: 048
     Dates: end: 20151102
  13. E-FEN BUCCAL [Suspect]
     Active Substance: FENTANYL CITRATE
     Dosage: 100 MICROGRAM DAILY;
     Route: 002
     Dates: start: 20151021, end: 20151102
  14. CYMBALTA [Concomitant]
     Active Substance: DULOXETINE HYDROCHLORIDE
     Indication: CANCER PAIN
     Dosage: 20 MILLIGRAM DAILY;
     Route: 048
     Dates: end: 20151102
  15. NIFEDIPINE CR [Concomitant]
     Active Substance: NIFEDIPINE
     Indication: HYPERTENSION
     Dosage: 20 MILLIGRAM DAILY;
     Route: 048
     Dates: end: 20151102
  16. PANVITAN [Concomitant]
     Indication: CACHEXIA
     Dosage: 1 GRAM DAILY;
     Route: 048
     Dates: end: 20151102
  17. PROMAC [Concomitant]
     Active Substance: NITROFURANTOIN
     Indication: GASTRITIS
     Dosage: 180 MILLIGRAM DAILY;
     Route: 048
     Dates: end: 20151102
  18. MAGMITT [Concomitant]
     Active Substance: MAGNESIUM OXIDE
     Indication: CONSTIPATION
     Dosage: 1980 MILLIGRAM DAILY;
     Route: 048
     Dates: end: 20151102

REACTIONS (5)
  - Constipation [Recovered/Resolved]
  - Respiratory depression [Not Recovered/Not Resolved]
  - Hypoxia [Not Recovered/Not Resolved]
  - Nausea [Recovered/Resolved]
  - Vomiting [Recovered/Resolved]

NARRATIVE: CASE EVENT DATE: 20151007
